FAERS Safety Report 4353952-2 (Version None)
Quarter: 2004Q2

REPORT INFORMATION
  Report Type: 
  Country: None (occurrence: None)
  Receive Date: 20040506
  Receipt Date: 20040210
  Transmission Date: 20050107
  Serious: No
  Sender: FDA-Public Use
  Company Number: US-GLAXOSMITHKLINE-A0497776A

PATIENT
  Age: 57 Year
  Sex: Male

DRUGS (2)
  1. AVANDAMET [Suspect]
     Dosage: 1MG PER DAY
     Route: 048
     Dates: start: 20040204
  2. UNKNOWN [Concomitant]

REACTIONS (1)
  - BLOOD GLUCOSE INCREASED [None]
